FAERS Safety Report 13136152 (Version 1)
Quarter: 2017Q1

REPORT INFORMATION
  Report Type: Spontaneous
  Country: JP (occurrence: JP)
  Receive Date: 20170121
  Receipt Date: 20170121
  Transmission Date: 20170428
  Serious: Yes (Hospitalization)
  Sender: FDA-Public Use
  Company Number: JP-BION-005897

PATIENT
  Age: 8 Year
  Sex: Female

DRUGS (2)
  1. ETHOSUXIMIDE. [Suspect]
     Active Substance: ETHOSUXIMIDE
     Indication: EPILEPSY
  2. VALPROIC ACID. [Concomitant]
     Active Substance: VALPROIC ACID
     Indication: PETIT MAL EPILEPSY

REACTIONS (2)
  - Lupus-like syndrome [Recovered/Resolved]
  - Scleroderma-like reaction [Recovered/Resolved]
